FAERS Safety Report 20365136 (Version 2)
Quarter: 2022Q1

REPORT INFORMATION
  Report Type: Spontaneous
  Country: BG (occurrence: BG)
  Receive Date: 20220122
  Receipt Date: 20220202
  Transmission Date: 20220423
  Serious: Yes (Other)
  Sender: FDA-Public Use
  Company Number: BG-TAKEDA-2022TUS003899

PATIENT
  Age: 65 Year
  Sex: Female

DRUGS (4)
  1. FEBUXOSTAT [Suspect]
     Active Substance: FEBUXOSTAT
     Indication: Hyperuricaemia
     Dosage: 80 MILLIGRAM, QD
     Route: 048
     Dates: start: 20220112
  2. IBUPROFEN [Suspect]
     Active Substance: IBUPROFEN
     Indication: Hypertension
     Dosage: 7.5 MILLIGRAM, QD
     Route: 048
     Dates: start: 20220112
  3. NEBIVOLOL [Concomitant]
     Active Substance: NEBIVOLOL
     Indication: Hypertension
     Dosage: 5 MILLIGRAM, QD
     Route: 048
     Dates: start: 2012
  4. REPIDO PLUS [Concomitant]
     Indication: Hypertension
     Dosage: UNK UNK, QD
     Route: 048
     Dates: start: 20220104, end: 20220111

REACTIONS (1)
  - Eye haemorrhage [Unknown]

NARRATIVE: CASE EVENT DATE: 20220114
